FAERS Safety Report 18045749 (Version 1)
Quarter: 2020Q3

REPORT INFORMATION
  Report Type: Spontaneous
  Country: FR (occurrence: FR)
  Receive Date: 20200720
  Receipt Date: 20200720
  Transmission Date: 20201103
  Serious: Yes (Other)
  Sender: FDA-Public Use
  Company Number: FR-009507513-2007FRA005423

PATIENT
  Age: 28 Year
  Sex: Female
  Weight: 58 kg

DRUGS (2)
  1. DIPROSONE [Suspect]
     Active Substance: BETAMETHASONE DIPROPIONATE
     Indication: DERMATITIS ATOPIC
     Dosage: APPLICATION IN THIN LAYER ON THE PLAQUES 1 TO TWICE DAILY
     Route: 003
     Dates: start: 20121210, end: 20200305
  2. TRIDESONIT [Suspect]
     Active Substance: DESONIDE
     Indication: DERMATITIS ATOPIC
     Dosage: APPLICATION IN THIN LAYER 1 TO TWICE
     Route: 003
     Dates: start: 1996, end: 20200305

REACTIONS (4)
  - Insomnia [Not Recovered/Not Resolved]
  - Hyperhidrosis [Not Recovered/Not Resolved]
  - Dermatitis atopic [Not Recovered/Not Resolved]
  - Feeling of body temperature change [Not Recovered/Not Resolved]

NARRATIVE: CASE EVENT DATE: 20200307
